FAERS Safety Report 9090978 (Version 1)
Quarter: 2013Q1

REPORT INFORMATION
  Report Type: Report from Study
  Country: US (occurrence: US)
  Receive Date: 20130201
  Receipt Date: 20130201
  Transmission Date: 20140127
  Serious: No
  Sender: FDA-Public Use
  Company Number: US-ABBOTT-12P-163-1019927-00

PATIENT
  Age: 58 Year
  Sex: Female

DRUGS (18)
  1. HUMIRA [Suspect]
     Indication: CROHN^S DISEASE
  2. PREDNISONE [Concomitant]
     Indication: CROHN^S DISEASE
     Dosage: 20 MG DAILY
  3. TRAZADONE [Concomitant]
     Indication: ANXIETY
     Dosage: AT BEDTIME
  4. TRAZADONE [Concomitant]
     Indication: DEPRESSION
  5. GENERIC CELEXA [Concomitant]
     Indication: DEPRESSION
     Dosage: AT BEDTIME
  6. LOTRIL [Concomitant]
     Indication: HYPERTENSION
     Dosage: 10/20 DAILY
  7. OXYCODONE [Concomitant]
     Indication: BACK PAIN
     Dosage: 10/325 - 1 TABLET AS NEEDED UP TO 4 X A DAY
  8. MORPHINE [Concomitant]
     Indication: PAIN
  9. FAMOTIDINE [Concomitant]
     Indication: DYSPEPSIA
     Dosage: 40 MG DAILY
  10. LORAZEPAM [Concomitant]
     Indication: ANXIETY
     Dosage: 4 X DAILY AS NEEDED
  11. TIZANIDINE HCL [Concomitant]
     Indication: BACK DISORDER
     Dosage: 1/2 - 1 TABLET THREE DAILY AS NEEDED
  12. PROVIGIL [Concomitant]
     Indication: SOMNOLENCE
     Dosage: 200 MG DAILY
  13. VITAMIN E [Concomitant]
     Indication: SUPPLEMENTATION THERAPY
     Dosage: 400 IU DAILY
  14. VITAMIN D [Concomitant]
     Indication: SUPPLEMENTATION THERAPY
     Dosage: 5000 IU DAILY
  15. MULTIVITAMIN [Concomitant]
     Indication: PRODUCT USED FOR UNKNOWN INDICATION
     Dosage: DAILY
  16. VITAMIN C [Concomitant]
     Indication: SUPPLEMENTATION THERAPY
  17. CALCIUM CITRATE [Concomitant]
     Indication: PRODUCT USED FOR UNKNOWN INDICATION
  18. STOOL SOFTENER [Concomitant]
     Indication: PRODUCT USED FOR UNKNOWN INDICATION

REACTIONS (2)
  - Urinary tract infection [Unknown]
  - Sinusitis [Unknown]
